FAERS Safety Report 9448197 (Version 1)
Quarter: 2013Q3

REPORT INFORMATION
  Report Type: Spontaneous
  Country: US (occurrence: US)
  Receive Date: 20130808
  Receipt Date: 20130808
  Transmission Date: 20140515
  Serious: Yes (Hospitalization)
  Sender: FDA-Public Use
  Company Number: US-LUNDBECK-DKLU1086829

PATIENT
  Age: 69 Year
  Sex: Male

DRUGS (12)
  1. SABRIL (TABLET) [Suspect]
     Indication: COMPLEX PARTIAL SEIZURES
     Route: 048
  2. SABRIL (TABLET) [Suspect]
  3. SABRIL (TABLET) [Suspect]
  4. SABRIL (TABLET) [Suspect]
  5. SABRIL (TABLET) [Suspect]
  6. CEFEPIME [Suspect]
     Indication: URINARY TRACT INFECTION
  7. VIMPAT [Suspect]
     Indication: CONVULSION
  8. VIMPAT [Suspect]
  9. VIMPAT [Suspect]
  10. CLONAZEPAM [Concomitant]
     Indication: PRODUCT USED FOR UNKNOWN INDICATION
  11. MELATONIN [Concomitant]
     Indication: INSOMNIA
     Dosage: PRN
  12. PROBIOTIC [Concomitant]
     Indication: PRODUCT USED FOR UNKNOWN INDICATION

REACTIONS (10)
  - Grand mal convulsion [Unknown]
  - Pneumonia aspiration [Unknown]
  - Sepsis [Unknown]
  - Mental status changes [Recovered/Resolved]
  - Pneumonia [Recovered/Resolved]
  - Respiratory failure [Unknown]
  - Urinary tract infection [Recovered/Resolved]
  - Encephalopathy [Recovered/Resolved]
  - Convulsion [Unknown]
  - Sedation [Unknown]
